FAERS Safety Report 9321334 (Version 5)
Quarter: 2015Q1

REPORT INFORMATION
  Report Type: Report from Study
  Country: DE (occurrence: DE)
  Receive Date: 20130531
  Receipt Date: 20150216
  Transmission Date: 20150721
  Serious: Yes (Other)
  Sender: FDA-Public Use
  Company Number: DE-ROCHE-1229634

PATIENT

DRUGS (1)
  1. BEVACIZUMAB [Suspect]
     Active Substance: BEVACIZUMAB
     Indication: GENITAL NEOPLASM MALIGNANT FEMALE
     Dosage: 10 MG/KG BW Q2W OR 15 MG/KG BW Q3W
     Route: 065

REACTIONS (8)
  - Epistaxis [Unknown]
  - Infection [Unknown]
  - Inflammation [Unknown]
  - Hypertension [Unknown]
  - Nephropathy toxic [Unknown]
  - Subileus [Unknown]
  - Proteinuria [Unknown]
  - Headache [Unknown]
